FAERS Safety Report 8924027 (Version 3)
Quarter: 2013Q2

REPORT INFORMATION
  Report Type: Report from Study
  Country: DE (occurrence: DE)
  Receive Date: 20121126
  Receipt Date: 20130524
  Transmission Date: 20140414
  Serious: Yes (Other)
  Sender: FDA-Public Use
  Company Number: DE-ROCHE-1160041

PATIENT
  Age: 71 Year
  Sex: Male
  Weight: 60 kg

DRUGS (4)
  1. RANIBIZUMAB [Suspect]
     Indication: AGE-RELATED MACULAR DEGENERATION
     Route: 050
     Dates: start: 20120531
  2. RANIBIZUMAB [Suspect]
     Route: 050
     Dates: start: 20120709
  3. RANIBIZUMAB [Suspect]
     Route: 050
     Dates: start: 20120820
  4. AZOPT [Concomitant]
     Route: 065
     Dates: start: 20010831

REACTIONS (3)
  - Detachment of retinal pigment epithelium [Not Recovered/Not Resolved]
  - Condition aggravated [Not Recovered/Not Resolved]
  - Intraocular pressure increased [Recovered/Resolved]
